FAERS Safety Report 13071436 (Version 2)
Quarter: 2018Q4

REPORT INFORMATION
  Report Type: Spontaneous
  Country: FR (occurrence: FR)
  Receive Date: 20161229
  Receipt Date: 20181005
  Transmission Date: 20190204
  Serious: Yes (Hospitalization)
  Sender: FDA-Public Use
  Company Number: FR-ELI_LILLY_AND_COMPANY-FR201612008731

PATIENT
  Age: 52 Year
  Sex: Male

DRUGS (4)
  1. AKINETON [Concomitant]
     Active Substance: BIPERIDEN HYDROCHLORIDE
     Indication: PRODUCT USED FOR UNKNOWN INDICATION
     Dosage: UNK, UNKNOWN
     Route: 065
  2. LOXAPAC                            /00401803/ [Concomitant]
     Indication: PRODUCT USED FOR UNKNOWN INDICATION
     Dosage: UNK, UNKNOWN
     Route: 065
  3. ZYPADHERA [Suspect]
     Active Substance: OLANZAPINE PAMOATE
     Indication: SCHIZOPHRENIA
     Dosage: 300 MG, EVERY 14 DAYS
     Route: 030
     Dates: start: 20161206, end: 20170103
  4. TEGRETOL [Concomitant]
     Active Substance: CARBAMAZEPINE
     Indication: PRODUCT USED FOR UNKNOWN INDICATION
     Dosage: UNK, UNKNOWN
     Route: 065

REACTIONS (9)
  - Hyperhidrosis [Unknown]
  - Confusional state [Unknown]
  - Akathisia [Unknown]
  - Hyponatraemia [Unknown]
  - Tachycardia [Unknown]
  - Hypertension [Unknown]
  - Post-injection delirium sedation syndrome [Unknown]
  - Hypokalaemia [Unknown]
  - Dysarthria [Unknown]

NARRATIVE: CASE EVENT DATE: 20161206
